FAERS Safety Report 8462564-0 (Version None)
Quarter: 2012Q2

REPORT INFORMATION
  Report Type: 
  Country: None (occurrence: None)
  Receive Date: 20120620
  Receipt Date: 20120620
  Transmission Date: 20120825
  Serious: Yes (Life-Threatening)
  Sender: FDA-Public Use
  Company Number: None

PATIENT
  Age: 65 Year
  Sex: Male
  Weight: 105 kg

DRUGS (28)
  1. FUROSEMIDE [Concomitant]
  2. GABAPENTIN [Concomitant]
  3. NOREPINEPHRINE [Concomitant]
  4. TIMOLOL EYE DROPS [Concomitant]
  5. CEFTRIAXONE [Concomitant]
  6. FENTANYL [Concomitant]
  7. FERROUS SULFATE TAB [Concomitant]
  8. HEPARIN LOCK-FLUSH [Concomitant]
  9. CETIRIZINE [Concomitant]
  10. PANTOPRAZOLE [Concomitant]
  11. PRAVASTATIN [Concomitant]
  12. SUCCINLICHOLINE [Concomitant]
  13. ENOXAPARIN SODIUM [Suspect]
     Indication: PULMONARY EMBOLISM
     Dosage: 110 MG EVERY 12 HOURS SUBCUTEOUS
     Route: 058
     Dates: start: 20120527, end: 20120602
  14. GLIPIZIDE [Concomitant]
  15. INSULIN GLARGINE [Concomitant]
  16. INSULIN LISPRO [Concomitant]
  17. METHYLPREDNISOLONE [Concomitant]
  18. ASPIRIN [Concomitant]
  19. CEFEPIME [Concomitant]
  20. HYDROCHLOROTHIAZIDE [Concomitant]
  21. LISINOPRIL [Concomitant]
  22. METOPROLOL TARTRATE [Concomitant]
  23. MORPHINE SULFATE [Concomitant]
  24. ARIXTRA [Suspect]
     Indication: PULMONARY EMBOLISM
     Dosage: 75 MG ONCE DAILY SUBCUTANEOUS
     Route: 058
     Dates: start: 20120602, end: 20120607
  25. PREDNISONE TAB [Concomitant]
  26. PROPOFOL [Concomitant]
  27. VANCOMYCIN [Concomitant]
  28. PREDNISOLONE ACETATE EYE DROPS [Concomitant]

REACTIONS (4)
  - ANTICOAGULATION DRUG LEVEL BELOW THERAPEUTIC [None]
  - RESPIRATORY FAILURE [None]
  - PNEUMONIA [None]
  - PLATELET COUNT DECREASED [None]
